FAERS Safety Report 20611692 (Version 1)
Quarter: 2022Q1

REPORT INFORMATION
  Report Type: Spontaneous
  Country: US (occurrence: None)
  Receive Date: 20220318
  Receipt Date: 20220318
  Transmission Date: 20220423
  Serious: Yes (Hospitalization)
  Sender: FDA-Public Use
  Company Number: None

PATIENT
  Age: 72 Year
  Sex: Female

DRUGS (1)
  1. TASIGNA [Suspect]
     Active Substance: NILOTINIB
     Indication: Leukaemia
     Dosage: OTHER FREQUENCY : EVERY12HOURS;?
     Route: 048

REACTIONS (3)
  - Mental status changes [None]
  - Malaise [None]
  - Blood electrolytes decreased [None]

NARRATIVE: CASE EVENT DATE: 20220310
